FAERS Safety Report 17570759 (Version 1)
Quarter: 2020Q1

REPORT INFORMATION
  Report Type: Spontaneous
  Country: US (occurrence: US)
  Receive Date: 20200323
  Receipt Date: 20200323
  Transmission Date: 20200409
  Serious: Yes (Disabling, Other)
  Sender: FDA-Public Use
  Company Number: US-PFIZER INC-2020001133

PATIENT
  Age: 35 Year

DRUGS (1)
  1. ESTRING [Suspect]
     Active Substance: ESTRADIOL
     Dosage: 1 DF, MONTHLY (INSERT 1 RING PER MONTH)

REACTIONS (2)
  - Ankle fracture [Unknown]
  - Off label use [Unknown]
